FAERS Safety Report 6211324-X (Version None)
Quarter: 2009Q2

REPORT INFORMATION
  Report Type: 
  Country: None (occurrence: None)
  Receive Date: 20090602
  Receipt Date: 20090528
  Transmission Date: 20091009
  Serious: Yes (Hospitalization)
  Sender: FDA-Public Use
  Company Number: SE-BRISTOL-MYERS SQUIBB COMPANY-14641922

PATIENT
  Age: 66 Year
  Sex: Female

DRUGS (4)
  1. ORENCIA [Suspect]
     Indication: RHEUMATOID ARTHRITIS
     Route: 042
     Dates: start: 20080610, end: 20090225
  2. METHOTREXATE [Concomitant]
     Dosage: TAB
  3. PREDNISOLONE [Concomitant]
     Dosage: TAB
  4. CHLOROQUINE PHOSPHATE [Concomitant]

REACTIONS (1)
  - DERMATITIS PSORIASIFORM [None]
